FAERS Safety Report 6643391-3 (Version None)
Quarter: 2010Q1

REPORT INFORMATION
  Report Type: 
  Country: None (occurrence: None)
  Receive Date: 20100319
  Receipt Date: 20100311
  Transmission Date: 20100710
  Serious: Yes (Hospitalization, Other)
  Sender: FDA-Public Use
  Company Number: CA-ABBOTT-09P-028-0497188-00

PATIENT
  Sex: Female
  Weight: 99.88 kg

DRUGS (17)
  1. HUMIRA [Suspect]
     Indication: RHEUMATOID ARTHRITIS
     Route: 058
     Dates: start: 20061223
  2. HUMIRA [Suspect]
  3. ANTIBIOTICS [Concomitant]
     Indication: CELLULITIS
     Route: 042
     Dates: end: 20090112
  4. APO-CEPHALEX [Concomitant]
     Indication: CELLULITIS
     Dates: start: 20090113
  5. IRON [Concomitant]
     Indication: ANAEMIA
     Route: 048
  6. SENOKOT [Concomitant]
     Indication: DRUG USE FOR UNKNOWN INDICATION
     Route: 048
  7. PANTOPRAZOLE [Concomitant]
     Indication: HYPERCHLORHYDRIA
     Route: 048
  8. HYDROXYCHLOROQUINE SULFATE [Concomitant]
     Indication: DRUG USE FOR UNKNOWN INDICATION
     Route: 048
  9. FERROUS FUMARATE [Concomitant]
     Indication: ANAEMIA
     Route: 048
  10. SULFASALAZINE [Concomitant]
     Indication: DRUG USE FOR UNKNOWN INDICATION
     Dosage: 500MG X 3 TABLETS TWICE DAILY
     Route: 048
  11. PREDNISONE [Concomitant]
     Indication: DRUG USE FOR UNKNOWN INDICATION
     Route: 048
  12. GLYBURIDE [Concomitant]
     Indication: TYPE 1 DIABETES MELLITUS
     Dosage: 5MG X 1.5 TABLETS ONCE DAILY
     Route: 048
     Dates: start: 20091101
  13. CO ETIDROCAL COMBO KIT [Concomitant]
     Indication: OSTEOPOROSIS
     Route: 048
  14. OXYCONTIN [Concomitant]
     Indication: ARTHRALGIA
     Route: 048
  15. NAPROXEN [Concomitant]
     Indication: DRUG USE FOR UNKNOWN INDICATION
     Route: 048
  16. METHOTREXATE [Concomitant]
     Indication: DRUG USE FOR UNKNOWN INDICATION
     Route: 058
  17. FOLIC ACID [Concomitant]
     Indication: DRUG USE FOR UNKNOWN INDICATION
     Route: 048

REACTIONS (9)
  - CELLULITIS [None]
  - CONSTIPATION [None]
  - DEPRESSION [None]
  - DYSPNOEA [None]
  - INCISION SITE INFECTION [None]
  - OSTEOARTHRITIS [None]
  - RHEUMATOID ARTHRITIS [None]
  - TYPE 1 DIABETES MELLITUS [None]
  - WOUND DEHISCENCE [None]
